FAERS Safety Report 6862995-6 (Version None)
Quarter: 2010Q3

REPORT INFORMATION
  Report Type: 
  Country: None (occurrence: None)
  Receive Date: 20100721
  Receipt Date: 20100709
  Transmission Date: 20110219
  Serious: Yes (Other)
  Sender: FDA-Public Use
  Company Number: JP-PFIZER INC-2010089025

PATIENT
  Age: 76 Year
  Sex: Female

DRUGS (2)
  1. CELECOX [Suspect]
     Dosage: 200 MG DAILY
     Route: 048
     Dates: start: 20100619, end: 20100621
  2. AMLODIPINE BESILATE [Concomitant]
     Dosage: UNK
     Route: 048

REACTIONS (2)
  - DRUG ERUPTION [None]
  - SWELLING FACE [None]
